FAERS Safety Report 5569430-9 (Version None)
Quarter: 2007Q4

REPORT INFORMATION
  Report Type: 
  Country: None (occurrence: None)
  Receive Date: 20071220
  Receipt Date: 20071213
  Transmission Date: 20080405
  Serious: Yes (Other)
  Sender: FDA-Public Use
  Company Number: PHBS2007DK20927

PATIENT
  Age: 55 Year
  Sex: Male

DRUGS (1)
  1. VOLTAREN OPHTHA SDU (NVO) [Suspect]
     Indication: EYE PAIN
     Dosage: 1 DRP, BID
     Dates: start: 20071212, end: 20071213

REACTIONS (1)
  - BLOOD PRESSURE INCREASED [None]
